FAERS Safety Report 21284242 (Version 1)
Quarter: 2022Q3

REPORT INFORMATION
  Report Type: Other
  Country: GT (occurrence: GT)
  Receive Date: 20220902
  Receipt Date: 20220902
  Transmission Date: 20221027
  Serious: Yes (Hospitalization)
  Sender: FDA-Public Use
  Company Number: GT-TOLMAR, INC.-22GT036335

PATIENT
  Age: 90 Year
  Sex: Male

DRUGS (1)
  1. ELIGARD [Suspect]
     Active Substance: LEUPROLIDE ACETATE
     Indication: Prostate cancer
     Dosage: 45 MILLIGRAM, Q 6 MONTH
     Route: 058
     Dates: start: 20210430

REACTIONS (3)
  - Cholelithiasis [Recovering/Resolving]
  - Pain [Recovering/Resolving]
  - Nosocomial infection [Recovering/Resolving]

NARRATIVE: CASE EVENT DATE: 20220813
